FAERS Safety Report 10510108 (Version 1)
Quarter: 2014Q4

REPORT INFORMATION
  Report Type: Spontaneous
  Country: US (occurrence: None)
  Receive Date: 20141009
  Receipt Date: 20141009
  Transmission Date: 20150528
  Serious: Yes (Death, Life-Threatening, Hospitalization)
  Sender: FDA-Public Use
  Company Number: None

PATIENT
  Age: 38 Year
  Sex: Female
  Weight: 73.94 kg

DRUGS (1)
  1. PARAGARD T380A [Suspect]
     Active Substance: COPPER

REACTIONS (2)
  - Exposure during pregnancy [None]
  - Ectopic pregnancy [None]

NARRATIVE: CASE EVENT DATE: 20141002
